FAERS Safety Report 4856671-9 (Version None)
Quarter: 2005Q4

REPORT INFORMATION
  Report Type: 
  Country: None (occurrence: None)
  Receive Date: 20051219
  Receipt Date: 20050112
  Transmission Date: 20060501
  Serious: No
  Sender: FDA-Public Use
  Company Number: US-GLAXOSMITHKLINE-A0540392A

PATIENT
  Age: 62 Year
  Sex: Male

DRUGS (1)
  1. NICODERM CQ [Suspect]
     Dates: start: 20050101

REACTIONS (8)
  - ASTHENIA [None]
  - COUGH [None]
  - DYSPNOEA [None]
  - FEELING JITTERY [None]
  - ILL-DEFINED DISORDER [None]
  - INFLUENZA [None]
  - PAIN [None]
  - PYREXIA [None]
